FAERS Safety Report 14061056 (Version 1)
Quarter: 2017Q4

REPORT INFORMATION
  Report Type: Spontaneous
  Country: GB (occurrence: GB)
  Receive Date: 20171008
  Receipt Date: 20171008
  Transmission Date: 20180321
  Serious: Yes (Death, Other)
  Sender: FDA-Public Use
  Company Number: GB-TORRENT-00015675

PATIENT
  Age: 45 Year
  Sex: Male

DRUGS (5)
  1. RISPERIDONE. [Suspect]
     Active Substance: RISPERIDONE
  2. HALOPERIDOL. [Concomitant]
     Active Substance: HALOPERIDOL
  3. PREGABALIN. [Concomitant]
     Active Substance: PREGABALIN
  4. KEPPRA [Concomitant]
     Active Substance: LEVETIRACETAM
  5. EPILIM [Concomitant]
     Active Substance: VALPROATE SODIUM

REACTIONS (2)
  - Cardiac disorder [Fatal]
  - Hyponatraemia [Not Recovered/Not Resolved]

NARRATIVE: CASE EVENT DATE: 20140425
